FAERS Safety Report 8533511-8 (Version None)
Quarter: 2012Q3

REPORT INFORMATION
  Report Type: 
  Country: None (occurrence: None)
  Receive Date: 20120724
  Receipt Date: 20120716
  Transmission Date: 20120928
  Serious: Yes (Hospitalization, Other)
  Sender: FDA-Public Use
  Company Number: VE-ELI_LILLY_AND_COMPANY-VE201207006807

PATIENT

DRUGS (1)
  1. HUMALOG MIX 75/25 [Suspect]
     Indication: GESTATIONAL DIABETES
     Dosage: 10 IU, BID
     Dates: start: 20120229, end: 20120302

REACTIONS (4)
  - CONVULSION NEONATAL [None]
  - FOETAL EXPOSURE DURING PREGNANCY [None]
  - HYPOXIA [None]
  - PREMATURE BABY [None]
